FAERS Safety Report 7392616-8 (Version None)
Quarter: 2011Q2

REPORT INFORMATION
  Report Type: 
  Country: None (occurrence: None)
  Receive Date: 20110404
  Receipt Date: 20110324
  Transmission Date: 20111010
  Serious: Yes (Hospitalization, Other)
  Sender: FDA-Public Use
  Company Number: JP-ASTRAZENECA-2010SE60603

PATIENT
  Age: 24147 Day
  Sex: Male
  Weight: 58 kg

DRUGS (7)
  1. SEROQUEL [Suspect]
     Dosage: 400 MGS DAILY, THREE TIMES A DAY
     Route: 048
     Dates: start: 20101112, end: 20101116
  2. SEROQUEL [Suspect]
     Dosage: 400 MG DAILY, THREE TIMES PER DAY
     Route: 048
     Dates: start: 20101124
  3. ROHYPNOL [Concomitant]
     Indication: INSOMNIA
     Route: 048
     Dates: start: 20100922
  4. ZYPREXA [Concomitant]
     Indication: SCHIZOPHRENIA
     Route: 048
     Dates: start: 20100901, end: 20101112
  5. SEROQUEL [Suspect]
     Indication: SCHIZOPHRENIA
     Dosage: 200 MGS DAILY, THREE TIMES A DAY
     Route: 048
     Dates: start: 20101110, end: 20101111
  6. TASMOLIN [Concomitant]
     Indication: EXTRAPYRAMIDAL DISORDER
     Route: 048
     Dates: start: 20101027
  7. SEROQUEL [Suspect]
     Dosage: 500 MG DAILY, THREE TIMES PER DAY
     Route: 048
     Dates: start: 20101110, end: 20101123

REACTIONS (2)
  - BLOOD PRESSURE DECREASED [None]
  - FALL [None]
